FAERS Safety Report 9172068 (Version 1)
Quarter: 2013Q1

REPORT INFORMATION
  Report Type: Spontaneous
  Country: FR (occurrence: FR)
  Receive Date: 20130319
  Receipt Date: 20130319
  Transmission Date: 20140127
  Serious: Yes (Hospitalization)
  Sender: FDA-Public Use
  Company Number: PHHY2013FR025198

PATIENT
  Age: 63 Year
  Sex: Female

DRUGS (7)
  1. TEGRETOL LP [Suspect]
     Dosage: 400 MG, BID
     Route: 048
     Dates: start: 1990
  2. TEGRETOL LP [Suspect]
     Dosage: 200 MG, BID
     Route: 048
     Dates: start: 20130112
  3. LAROXYL [Suspect]
     Dosage: 50 MG, DAILY
     Route: 048
     Dates: start: 201107, end: 20130112
  4. QUETIAPINE FUMARATE [Suspect]
     Dosage: 50 MG, DAILY
     Route: 048
     Dates: start: 20121212, end: 20130112
  5. PLAVIX [Concomitant]
  6. CRESTOR [Concomitant]
  7. ATENOLOL [Concomitant]

REACTIONS (2)
  - Fall [Recovered/Resolved]
  - Hyponatraemia [Recovered/Resolved]
